FAERS Safety Report 12468209 (Version 1)
Quarter: 2016Q2

REPORT INFORMATION
  Report Type: Spontaneous
  Country: GR (occurrence: GR)
  Receive Date: 20160615
  Receipt Date: 20160615
  Transmission Date: 20160815
  Serious: Yes (Other)
  Sender: FDA-Public Use
  Company Number: PHHY2016GR082067

PATIENT
  Sex: Male

DRUGS (2)
  1. AFINITOR [Suspect]
     Active Substance: EVEROLIMUS
     Indication: METASTASES TO LIVER
     Route: 065
  2. AFINITOR [Interacting]
     Active Substance: EVEROLIMUS
     Indication: CARCINOID TUMOUR

REACTIONS (4)
  - Hepatic enzyme increased [Unknown]
  - Product use issue [Unknown]
  - Drug interaction [Unknown]
  - Hepatic necrosis [Not Recovered/Not Resolved]
